FAERS Safety Report 22014125 (Version 2)
Quarter: 2023Q2

REPORT INFORMATION
  Report Type: Report from Study
  Country: IL (occurrence: IL)
  Receive Date: 20230221
  Receipt Date: 20230607
  Transmission Date: 20230721
  Serious: Yes (Hospitalization)
  Sender: FDA-Public Use
  Company Number: IL-ABBVIE-4210581

PATIENT
  Age: 75 Year
  Sex: Male

DRUGS (3)
  1. CARBIDOPA\LEVODOPA [Suspect]
     Active Substance: CARBIDOPA\LEVODOPA
     Indication: Parkinson^s disease
     Dosage: MORNING DOSAGE(ML)  15.0, CONTINUOUS DOSAGE (ML/H)  3.8, EXTRA DOSAGE (ML)  2.5?START DATE 2022
     Route: 050
  2. CARBIDOPA\LEVODOPA [Suspect]
     Active Substance: CARBIDOPA\LEVODOPA
     Dosage: MORNING DOSAGE(ML)  14.0, CONTINUOUS DOSAGE (ML/H)  4.1, EXTRA DOSAGE (ML)  2.6
     Route: 050
  3. CARBIDOPA\LEVODOPA [Suspect]
     Active Substance: CARBIDOPA\LEVODOPA
     Route: 050
     Dates: start: 20220117

REACTIONS (9)
  - Head injury [Unknown]
  - Coronavirus infection [Recovering/Resolving]
  - On and off phenomenon [Recovering/Resolving]
  - Stoma site hypergranulation [Recovering/Resolving]
  - Device difficult to use [Recovering/Resolving]
  - Device issue [Recovering/Resolving]
  - Nocturia [Recovering/Resolving]
  - Therapeutic product effect decreased [Unknown]
  - Fall [Recovered/Resolved]

NARRATIVE: CASE EVENT DATE: 20220701
